FAERS Safety Report 9751307 (Version 1)
Quarter: 2013Q4

REPORT INFORMATION
  Report Type: Spontaneous
  Country: US (occurrence: US)
  Receive Date: 20131212
  Receipt Date: 20131212
  Transmission Date: 20140711
  Serious: No
  Sender: FDA-Public Use
  Company Number: US-BIOGENIDEC-2013BI097398

PATIENT
  Age: 48 Year
  Sex: Female

DRUGS (12)
  1. TECFIDERA [Suspect]
     Indication: MULTIPLE SCLEROSIS
     Route: 048
     Dates: start: 20130705, end: 20130712
  2. TECFIDERA [Suspect]
     Indication: MULTIPLE SCLEROSIS
     Route: 048
     Dates: start: 20130713
  3. ZOCOR [Concomitant]
  4. LASIX [Concomitant]
  5. AMBIEN [Concomitant]
  6. LISINOPRIL [Concomitant]
  7. GABAPENTIN [Concomitant]
  8. ESTRADOL [Concomitant]
  9. SYNTHROID [Concomitant]
  10. ZANAFLEX [Concomitant]
  11. PROVIGIL [Concomitant]
  12. FLEXERIL [Concomitant]

REACTIONS (1)
  - Flushing [Unknown]
